FAERS Safety Report 4357952-8 (Version None)
Quarter: 2004Q2

REPORT INFORMATION
  Report Type: 
  Country: None (occurrence: None)
  Receive Date: 20040513
  Receipt Date: 20040513
  Transmission Date: 20050107
  Serious: Yes (Death, Hospitalization)
  Sender: FDA-Public Use
  Company Number: None

PATIENT
  Age: 48 Year
  Sex: Male
  Weight: 93.8946 kg

DRUGS (9)
  1. AMIODARONE HCL [Suspect]
     Indication: ATRIAL FIBRILLATION
     Dosage: 0.5-1MG/HR 24 HOUR INTRAVENOUS
     Route: 042
     Dates: start: 20031204, end: 20031205
  2. AMIODARONE HCL [Suspect]
     Indication: ATRIAL FIBRILLATION
     Dosage: 400 MG BID THEN Q ORAL
     Route: 048
     Dates: start: 20031205, end: 20031217
  3. COUMADIN [Concomitant]
  4. METOPROLOL [Concomitant]
  5. PRILOSEC [Concomitant]
  6. LEVOTHYROXINE [Concomitant]
  7. LISINOPRIL [Concomitant]
  8. HUMALOG INSULIN PUMP [Concomitant]
  9. TYLENOL W/ CODEINE NO. 3 [Concomitant]

REACTIONS (13)
  - ASTHENIA [None]
  - BACK PAIN [None]
  - CARDIO-RESPIRATORY ARREST [None]
  - DEHYDRATION [None]
  - DIZZINESS [None]
  - DRUG TOXICITY [None]
  - HEPATIC FAILURE [None]
  - HYPOTENSION [None]
  - NAUSEA [None]
  - NECROSIS [None]
  - OVERDOSE [None]
  - RENAL FAILURE ACUTE [None]
  - SYNCOPE [None]
